FAERS Safety Report 7942691-4 (Version None)
Quarter: 2011Q4

REPORT INFORMATION
  Report Type: 
  Country: None (occurrence: None)
  Receive Date: 20111128
  Receipt Date: 20111117
  Transmission Date: 20120403
  Serious: Yes (Other)
  Sender: FDA-Public Use
  Company Number: AT-SANOFI-AVENTIS-2011SA076325

PATIENT
  Age: 67 Year
  Sex: Female
  Weight: 75 kg

DRUGS (5)
  1. MULTAQ [Suspect]
     Indication: ATRIAL FIBRILLATION
     Route: 048
     Dates: start: 20101001, end: 20110428
  2. AQUAPHORIL [Concomitant]
     Indication: HYPERTENSION
     Route: 048
     Dates: start: 20070101
  3. SIMVASTATIN [Concomitant]
     Route: 048
     Dates: start: 20070101
  4. ENALAPRIL MALEATE [Concomitant]
     Indication: HYPERTENSION
     Route: 048
     Dates: start: 20070101
  5. CONCOR [Concomitant]
     Indication: HYPERTENSION
     Route: 048
     Dates: start: 20070101

REACTIONS (2)
  - ERYTHEMA [None]
  - HYPERAESTHESIA [None]
